FAERS Safety Report 9185307 (Version 1)
Quarter: 2012Q4

REPORT INFORMATION
  Report Type: 
  Country: CH (occurrence: CH)
  Receive Date: 20121031
  Receipt Date: 20121031
  Transmission Date: 20130627
  Serious: Yes (Other)
  Sender: FDA-Public Use
  Company Number: CH-ELI_LILLY_AND_COMPANY-CH201210006421

PATIENT
  Sex: Male
  Weight: 93 kg

DRUGS (12)
  1. CYMBALTA [Suspect]
     Dosage: 60 mg, qd
     Dates: start: 20120831
  2. CYMBALTA [Suspect]
     Dosage: 30 mg, qd
  3. ASPIRIN CARDIO [Concomitant]
     Dosage: 100 mg, qd
     Route: 048
  4. ATACAND HCT [Concomitant]
     Dosage: UNK, qd
  5. SORTIS [Concomitant]
     Dosage: 80 mg, qd
     Route: 048
  6. AMLODIPIN                          /00972401/ [Concomitant]
     Dosage: 10 mg, qd
     Route: 048
  7. PANTOZAL [Concomitant]
     Dosage: 80 mg, qd
     Route: 048
  8. BRILIQUE [Concomitant]
     Dosage: 90 mg, qd
     Route: 048
  9. PRAMIPEXOLE [Concomitant]
     Dosage: .25 mg, qd
  10. INSULIN [Concomitant]
  11. TRAMADOL [Concomitant]
  12. LYRICA [Concomitant]
     Indication: DIABETIC NEUROPATHY
     Dosage: 600 mg, qd

REACTIONS (4)
  - Motor dysfunction [Recovered/Resolved]
  - Tremor [Recovered/Resolved]
  - Dizziness [Recovered/Resolved]
  - Drug interaction [Unknown]
